FAERS Safety Report 4628995-1 (Version None)
Quarter: 2005Q2

REPORT INFORMATION
  Report Type: 
  Country: None (occurrence: None)
  Receive Date: 20050405
  Receipt Date: 20050405
  Transmission Date: 20051028
  Serious: Yes (Hospitalization)
  Sender: FDA-Public Use
  Company Number: None

PATIENT
  Age: 23 Year
  Sex: Female
  Weight: 49.4421 kg

DRUGS (2)
  1. TEQUIN [Suspect]
     Dosage: 1 FOR 3 DAYS EVERY MORNING ORAL
     Route: 048
  2. VICOTIN [Suspect]
     Dosage: EVERY FOUR HRS ORAL
     Route: 048

REACTIONS (7)
  - BURNING SENSATION [None]
  - BURNS THIRD DEGREE [None]
  - FEELING ABNORMAL [None]
  - PAIN [None]
  - RASH [None]
  - RASH ERYTHEMATOUS [None]
  - SUNBURN [None]
